FAERS Safety Report 8468151-2 (Version None)
Quarter: 2012Q2

REPORT INFORMATION
  Report Type: 
  Country: None (occurrence: None)
  Receive Date: 20120626
  Receipt Date: 20120619
  Transmission Date: 20120825
  Serious: Yes (Hospitalization, Disabling, Other)
  Sender: FDA-Public Use
  Company Number: US-MERCK-1201USA03455

PATIENT
  Age: 59 Year
  Sex: Female
  Weight: 75 kg

DRUGS (7)
  1. FOSAMAX [Suspect]
     Indication: OSTEOPOROSIS
     Route: 048
     Dates: start: 20030101, end: 20080101
  2. EVISTA [Concomitant]
     Route: 065
     Dates: start: 20040101, end: 20100101
  3. VITAMIN D (UNSPECIFIED) [Concomitant]
     Indication: OSTEOPOROSIS
     Route: 065
  4. FOSAMAX [Suspect]
     Route: 048
     Dates: start: 20030101, end: 20080101
  5. EVISTA [Concomitant]
     Indication: OSTEOPOROSIS
     Route: 065
     Dates: start: 20040101, end: 20100101
  6. CALCIUM (UNSPECIFIED) AND VITAMIN D (UNSPECIFIED) [Concomitant]
     Indication: OSTEOPOROSIS
     Route: 065
  7. CALCIUM (UNSPECIFIED) [Concomitant]
     Indication: OSTEOPOROSIS
     Route: 065

REACTIONS (76)
  - FEMUR FRACTURE [None]
  - TIBIA FRACTURE [None]
  - ARTERIAL SPASM [None]
  - ARTHROPATHY [None]
  - BONE DISORDER [None]
  - SKELETAL INJURY [None]
  - DEEP VEIN THROMBOSIS [None]
  - MENISCUS LESION [None]
  - LOW TURNOVER OSTEOPATHY [None]
  - VISION BLURRED [None]
  - NECK PAIN [None]
  - HYPERLIPIDAEMIA [None]
  - HEADACHE [None]
  - DRUG INEFFECTIVE [None]
  - ANAEMIA POSTOPERATIVE [None]
  - UTERINE DISORDER [None]
  - INCISION SITE COMPLICATION [None]
  - PRESBYOESOPHAGUS [None]
  - CARPAL TUNNEL SYNDROME [None]
  - DYSPEPSIA [None]
  - ARTHRITIS [None]
  - FLATULENCE [None]
  - POST PROCEDURAL PULMONARY EMBOLISM [None]
  - ANXIETY [None]
  - DENTAL CARIES [None]
  - PRURITUS [None]
  - SKIN BURNING SENSATION [None]
  - RETINOPATHY [None]
  - NEUROPATHY PERIPHERAL [None]
  - MIGRAINE [None]
  - ANAEMIA [None]
  - DYSPNOEA [None]
  - BLOOD CHOLESTEROL INCREASED [None]
  - MUSCULAR WEAKNESS [None]
  - HYPERTENSION [None]
  - SYNOVIAL CYST [None]
  - ARTHRALGIA [None]
  - ACQUIRED OESOPHAGEAL WEB [None]
  - MUSCLE ATROPHY [None]
  - DEPRESSION [None]
  - PULMONARY INFARCTION [None]
  - OSTEOPENIA [None]
  - HYPOAESTHESIA [None]
  - IMPAIRED HEALING [None]
  - DIARRHOEA [None]
  - OSTEOARTHRITIS [None]
  - CATARACT [None]
  - CERVICOBRACHIAL SYNDROME [None]
  - COUGH [None]
  - POST PROCEDURAL COMPLICATION [None]
  - OEDEMA PERIPHERAL [None]
  - TOOTH DISORDER [None]
  - TENSION HEADACHE [None]
  - SPINAL COLUMN STENOSIS [None]
  - DIVERTICULUM INTESTINAL [None]
  - EROSIVE OESOPHAGITIS [None]
  - DEVICE FAILURE [None]
  - FRACTURE NONUNION [None]
  - PARAESTHESIA [None]
  - RADICULOPATHY [None]
  - PAIN IN EXTREMITY [None]
  - MYALGIA [None]
  - FALL [None]
  - FRACTURE [None]
  - PULMONARY EMBOLISM [None]
  - BONE LOSS [None]
  - CONTUSION [None]
  - LIGAMENT INJURY [None]
  - X-RAY OF PELVIS AND HIP ABNORMAL [None]
  - VENOUS INSUFFICIENCY [None]
  - STRESS [None]
  - PYREXIA [None]
  - SEBORRHOEIC KERATOSIS [None]
  - HERPES ZOSTER [None]
  - FATIGUE [None]
  - PERIPHERAL COLDNESS [None]
